FAERS Safety Report 17356583 (Version 1)
Quarter: 2020Q1

REPORT INFORMATION
  Report Type: Spontaneous
  Country: CH (occurrence: CH)
  Receive Date: 20200131
  Receipt Date: 20200131
  Transmission Date: 20200409
  Serious: Yes (Hospitalization)
  Sender: FDA-Public Use
  Company Number: CH-009507513-2001CHE007435

PATIENT
  Age: 68 Year
  Sex: Male

DRUGS (9)
  1. ATOZET [Suspect]
     Active Substance: ATORVASTATIN CALCIUM\EZETIMIBE
     Indication: HYPERCHOLESTEROLAEMIA
     Dosage: DISCONTINUATION OF ATOZET (ATORVASTATIN + EZETIMIBE) ON 13DEC2019, BUT CONTINUATION OF ATORVASTATIN
     Route: 048
     Dates: start: 20190506, end: 20191213
  2. CHONDROSULF [Suspect]
     Active Substance: CHONDROITIN SULFATE (CHICKEN)
     Indication: OSTEOARTHRITIS
     Dosage: EFFECTIVE START DATE OF TAKING THIS DRUG NOT KNOWN
     Route: 048
     Dates: start: 201907, end: 20191213
  3. DIAMICRON [Concomitant]
     Active Substance: GLICLAZIDE
     Indication: DIABETES MELLITUS
     Route: 048
  4. CALCIMAGON D3 [Concomitant]
     Active Substance: CALCIUM\CHOLECALCIFEROL
     Route: 048
  5. JARDIANCE MET [Concomitant]
     Active Substance: EMPAGLIFLOZIN\METFORMIN HYDROCHLORIDE
     Indication: DIABETES MELLITUS
     Route: 048
  6. SOLMUCOL [Suspect]
     Active Substance: ACETYLCYSTEINE
     Indication: BRONCHIAL SECRETION RETENTION
     Dosage: EFFECTIVE START DATES OF TAKING THIS DRUG NOT KNOWN; AS NECESSARY
     Route: 048
     Dates: end: 20191213
  7. OLFEN (DICLOFENAC SODIUM) [Suspect]
     Active Substance: DICLOFENAC SODIUM
     Indication: PAIN
     Dosage: AS NECESSARY
     Route: 048
     Dates: end: 20191213
  8. ASPIRINE C [Concomitant]
     Route: 048
     Dates: end: 20191213
  9. DAFALGAN [Suspect]
     Active Substance: ACETAMINOPHEN
     Indication: PAIN
     Dosage: AS NECESSARY
     Route: 048
     Dates: end: 20191213

REACTIONS (1)
  - Acquired haemophilia [Not Recovered/Not Resolved]

NARRATIVE: CASE EVENT DATE: 201909
